FAERS Safety Report 6744747-0 (Version None)
Quarter: 2010Q2

REPORT INFORMATION
  Report Type: 
  Country: None (occurrence: None)
  Receive Date: 20100527
  Receipt Date: 20100518
  Transmission Date: 20101027
  Serious: Yes (Other)
  Sender: FDA-Public Use
  Company Number: US-JNJCH-2010012388

PATIENT
  Age: 43 Year
  Sex: Female
  Weight: 88.5 kg

DRUGS (1)
  1. NEOSPORIN [Suspect]
     Indication: SKIN LACERATION
     Dosage: TEXT:^DAB^ 1 TIME A DAY
     Route: 061

REACTIONS (3)
  - BLISTER [None]
  - HYPERSENSITIVITY [None]
  - PRURITUS GENERALISED [None]
